FAERS Safety Report 4462644-0 (Version None)
Quarter: 2004Q3

REPORT INFORMATION
  Report Type: 
  Country: None (occurrence: None)
  Receive Date: 20040929
  Receipt Date: 20040909
  Transmission Date: 20050211
  Serious: Yes (Hospitalization)
  Sender: FDA-Public Use
  Company Number: 2004-0007164

PATIENT
  Age: 43 Year
  Sex: Male

DRUGS (10)
  1. TENOFOVIR DISOPROXIL FUMARATE (TENOFOVIR DISOPROXIL FUMARTE) [Suspect]
     Indication: HIV INFECTION
     Dosage: 300 MG, 1 IN 1 D, ORAL
     Route: 048
     Dates: start: 20040202
  2. EPIVIR [Suspect]
     Indication: HIV INFECTION
     Dates: start: 20040202
  3. AZITHROMYCIN [Concomitant]
  4. ETHAMBUTOL HCL [Concomitant]
  5. RIFABUTIN (RIFABUTIN) [Concomitant]
  6. BUPROPION HCL [Concomitant]
  7. LEXAPRO [Concomitant]
  8. TRAZODONE HCL [Concomitant]
  9. PYRIDOXINE (PYRIDOXINE) [Concomitant]
  10. ISONIAZID [Concomitant]

REACTIONS (19)
  - ABDOMINAL PAIN [None]
  - AZOTAEMIA [None]
  - BALANCE DISORDER [None]
  - BLOOD 1,25-DIHYDROXYCHOLECALCIFEROL INCREASED [None]
  - BLOOD PARATHYROID HORMONE DECREASED [None]
  - COUGH [None]
  - EXCORIATION [None]
  - FALL [None]
  - GRANULOMA [None]
  - HEPATIC STEATOSIS [None]
  - HYPERCALCAEMIA [None]
  - IMMUNE RECONSTITUTION SYNDROME [None]
  - LYMPH NODE ABSCESS [None]
  - MASS [None]
  - MYCOBACTERIUM AVIUM COMPLEX INFECTION [None]
  - NECROSIS [None]
  - PYREXIA [None]
  - RENAL FAILURE ACUTE [None]
  - SENSORY LOSS [None]
